FAERS Safety Report 8810266 (Version 2)
Quarter: 2012Q4

REPORT INFORMATION
  Report Type: 
  Country: US (occurrence: US)
  Receive Date: 20120926
  Receipt Date: 20121203
  Transmission Date: 20130627
  Serious: No
  Sender: FDA-Public Use
  Company Number: US-009507513-2012SP034388

PATIENT
  Sex: Female
  Weight: 54.42 kg

DRUGS (2)
  1. CLARITIN ORAL SOLUTION [Suspect]
     Indication: SEASONAL ALLERGY
     Dosage: 2.5 mg, bid
     Route: 048
  2. CLARITIN ORAL SOLUTION [Suspect]
     Indication: MEDICAL OBSERVATION

REACTIONS (2)
  - Dysgeusia [Recovered/Resolved]
  - Inappropriate schedule of drug administration [Recovered/Resolved]
